FAERS Safety Report 4779918-6 (Version None)
Quarter: 2005Q3

REPORT INFORMATION
  Report Type: 
  Country: None (occurrence: None)
  Receive Date: 20050914
  Receipt Date: 20050513
  Transmission Date: 20060218
  Serious: Yes (Death)
  Sender: FDA-Public Use
  Company Number: 163-20785-05050235

PATIENT
  Age: 72 Year
  Sex: Male

DRUGS (11)
  1. THALOMID [Suspect]
     Indication: MULTIPLE MYELOMA
     Dosage: 100MG - 150MG, DAILY, ORAL
     Route: 048
     Dates: start: 20020920, end: 20031201
  2. METOPROLOL SUCCINATE [Concomitant]
  3. LASIX [Concomitant]
  4. CARDIZEM [Concomitant]
  5. PLAVIX [Concomitant]
  6. CLONIDINE [Concomitant]
  7. OXYCONTIN [Concomitant]
  8. PAXIL [Concomitant]
  9. COUMADIN [Concomitant]
  10. XANAX [Concomitant]
  11. LORCET-HD [Concomitant]

REACTIONS (2)
  - DEATH [None]
  - DISEASE PROGRESSION [None]
